FAERS Safety Report 6654758-1 (Version None)
Quarter: 2010Q1

REPORT INFORMATION
  Report Type: 
  Country: None (occurrence: None)
  Receive Date: 20100328
  Receipt Date: 20100323
  Transmission Date: 20100710
  Serious: Yes (Hospitalization, Other)
  Sender: FDA-Public Use
  Company Number: US-BRISTOL-MYERS SQUIBB COMPANY-13877345

PATIENT
  Age: 10 Year
  Sex: Female
  Weight: 24 kg

DRUGS (10)
  1. IXABEPILONE [Suspect]
     Indication: NEPHROBLASTOMA
     Route: 042
     Dates: start: 20060821, end: 20070921
  2. BENADRYL [Concomitant]
  3. MIRALAX [Concomitant]
  4. ATIVAN [Concomitant]
  5. GABAPENTIN [Concomitant]
  6. HEPARIN [Concomitant]
  7. RANITIDINE [Concomitant]
  8. ACETAMINOPHEN [Concomitant]
  9. ONDANSETRON [Concomitant]
  10. OXYCODONE HCL [Concomitant]

REACTIONS (2)
  - PANCREATITIS [None]
  - PNEUMOTHORAX [None]
